FAERS Safety Report 18462965 (Version 3)
Quarter: 2021Q4

REPORT INFORMATION
  Report Type: Spontaneous
  Country: US (occurrence: US)
  Receive Date: 20201104
  Receipt Date: 20211021
  Transmission Date: 20220303
  Serious: No
  Sender: FDA-Public Use
  Company Number: US-PFIZER INC-2020425647

PATIENT
  Age: 68 Year
  Sex: Male

DRUGS (1)
  1. PHENYTOIN SODIUM [Suspect]
     Active Substance: PHENYTOIN SODIUM
     Indication: Seizure
     Dosage: 300 MG, DAILY (TAKE 1 CAPSULE BY MOUTH EVERY MORNING 2 CAPSULES AT BEDTIME)
     Route: 048

REACTIONS (1)
  - Therapeutic product effect incomplete [Unknown]
